FAERS Safety Report 18715652 (Version 1)
Quarter: 2021Q1

REPORT INFORMATION
  Report Type: Spontaneous
  Country: US (occurrence: US)
  Receive Date: 20210108
  Receipt Date: 20210108
  Transmission Date: 20210419
  Serious: Yes (Other)
  Sender: FDA-Public Use
  Company Number: US-APOTEX-2021AP000012

PATIENT
  Age: 53 Year
  Sex: Female

DRUGS (2)
  1. RISPERIDONE. [Concomitant]
     Active Substance: RISPERIDONE
     Indication: BIPOLAR DISORDER
     Dosage: UNK
     Route: 065
  2. LITHIUM CARBONATE. [Suspect]
     Active Substance: LITHIUM CARBONATE
     Indication: BIPOLAR DISORDER
     Dosage: UNK
     Route: 065

REACTIONS (4)
  - Chronic kidney disease [Recovering/Resolving]
  - Nephrogenic diabetes insipidus [Recovering/Resolving]
  - Hyperparathyroidism [Recovering/Resolving]
  - Drug level increased [Recovering/Resolving]
